FAERS Safety Report 16572651 (Version 2)
Quarter: 2019Q3

REPORT INFORMATION
  Report Type: Spontaneous
  Country: US (occurrence: US)
  Receive Date: 20190715
  Receipt Date: 20190806
  Transmission Date: 20191004
  Serious: No
  Sender: FDA-Public Use
  Company Number: US-SA-2019SA186814

PATIENT
  Age: 67 Year
  Sex: Male

DRUGS (1)
  1. TOUJEO [Suspect]
     Active Substance: INSULIN GLARGINE
     Indication: TYPE 2 DIABETES MELLITUS
     Dosage: AT A A MAXIMUM OF 90 UNITS PER DAY
     Route: 065
     Dates: start: 20180321

REACTIONS (2)
  - Device operational issue [Unknown]
  - Blood glucose abnormal [Unknown]
